FAERS Safety Report 5974755-9 (Version None)
Quarter: 2008Q4

REPORT INFORMATION
  Report Type: 
  Country: None (occurrence: None)
  Receive Date: 20081201
  Receipt Date: 20081119
  Transmission Date: 20090506
  Serious: Yes (Hospitalization)
  Sender: FDA-Public Use
  Company Number: JP-PFIZER INC-2008100390

PATIENT
  Sex: Male

DRUGS (12)
  1. LIPITOR [Suspect]
     Indication: HYPERLIPIDAEMIA
     Route: 048
     Dates: start: 20080311
  2. PREDNISOLONE [Suspect]
     Indication: POLYMYOSITIS
     Route: 048
     Dates: start: 20081006
  3. PREDNISOLONE [Suspect]
     Indication: INTERSTITIAL LUNG DISEASE
  4. FK506 [Suspect]
     Indication: POLYMYOSITIS
     Route: 048
     Dates: start: 20071109, end: 20081109
  5. FK506 [Suspect]
     Indication: INTERSTITIAL LUNG DISEASE
  6. TAKEPRON [Suspect]
     Indication: GASTRITIS PROPHYLAXIS
     Route: 048
     Dates: start: 20080311
  7. LORAZEPAM [Suspect]
     Indication: PANIC DISORDER
     Route: 048
     Dates: start: 20080519
  8. LORAZEPAM [Suspect]
     Indication: INSOMNIA
  9. LORAMET [Suspect]
     Indication: PANIC DISORDER
     Route: 048
     Dates: start: 20080519
  10. LORAMET [Suspect]
     Indication: INSOMNIA
  11. PROGRAF [Concomitant]
     Indication: POLYMYOSITIS
     Route: 048
     Dates: start: 20081110
  12. PROGRAF [Concomitant]
     Indication: INTERSTITIAL LUNG DISEASE

REACTIONS (1)
  - INTERSTITIAL LUNG DISEASE [None]
